FAERS Safety Report 7902746-7 (Version None)
Quarter: 2011Q4

REPORT INFORMATION
  Report Type: 
  Country: None (occurrence: None)
  Receive Date: 20111109
  Receipt Date: 20111031
  Transmission Date: 20120403
  Serious: Yes (Hospitalization)
  Sender: FDA-Public Use
  Company Number: US-BIOGENIDEC-2011BI035031

PATIENT
  Age: 53 Year
  Sex: Female

DRUGS (4)
  1. LEXAPRO [Concomitant]
     Indication: ANXIETY
  2. TYSABRI [Suspect]
     Indication: MULTIPLE SCLEROSIS
     Route: 042
     Dates: start: 20070911, end: 20111018
  3. BACLOFEN [Concomitant]
     Indication: MUSCLE SPASTICITY
  4. ZANAFLEX [Concomitant]
     Indication: MUSCLE SPASTICITY

REACTIONS (5)
  - MULTIPLE SCLEROSIS RELAPSE [None]
  - URINARY RETENTION [None]
  - STRESS [None]
  - CYSTITIS [None]
  - ANXIETY [None]
